FAERS Safety Report 9204499 (Version 2)
Quarter: 2013Q2

REPORT INFORMATION
  Report Type: Spontaneous
  Country: FR (occurrence: FR)
  Receive Date: 20130402
  Receipt Date: 20130503
  Transmission Date: 20140414
  Serious: Yes (Hospitalization)
  Sender: FDA-Public Use
  Company Number: FR-JNJFOC-20130316496

PATIENT
  Age: 52 Year
  Sex: Male

DRUGS (13)
  1. REMICADE [Suspect]
     Indication: PSORIATIC ARTHROPATHY
     Dosage: REINTRODUCED
     Route: 042
  2. REMICADE [Suspect]
     Indication: PSORIATIC ARTHROPATHY
     Route: 042
     Dates: end: 201204
  3. REMICADE [Suspect]
     Indication: PSORIATIC ARTHROPATHY
     Dosage: 2ND INFUSION AFTER REINTRODUCTION
     Route: 042
     Dates: start: 20130114
  4. INEXIUM [Concomitant]
     Route: 065
  5. PARACETAMOL [Concomitant]
     Dosage: LONG TERM
     Route: 048
  6. XATRAL LP [Concomitant]
     Route: 048
  7. LOXEN [Concomitant]
     Route: 048
  8. FORLAX [Concomitant]
     Dosage: 1 DF, LONGTERM
     Route: 048
  9. OXYCONTIN [Concomitant]
     Dosage: 1 DF, LONGTERM
     Route: 048
  10. NOCTAMIDE [Concomitant]
     Dosage: 1 DF, LONGTERM
     Route: 048
  11. OXYNORM [Concomitant]
     Dosage: 1 DF6 TIMES DAILY, LONGTERM
     Route: 048
  12. PREDNISOLONE [Concomitant]
     Dosage: LONG TERM
     Route: 048
  13. SERESTA [Concomitant]
     Route: 048

REACTIONS (3)
  - Vascular purpura [Recovered/Resolved]
  - Thrombocytopenia [Recovered/Resolved]
  - Pancreatitis acute [Recovered/Resolved]
